FAERS Safety Report 8477977-0 (Version None)
Quarter: 2012Q2

REPORT INFORMATION
  Report Type: 
  Country: None (occurrence: None)
  Receive Date: 20120629
  Receipt Date: 20120620
  Transmission Date: 20120825
  Serious: Yes (Other)
  Sender: FDA-Public Use
  Company Number: US-BRISTOL-MYERS SQUIBB COMPANY-16700171

PATIENT
  Sex: Female

DRUGS (4)
  1. MULTI-VITAMIN [Concomitant]
     Dosage: CHEWABLE ONCE A DAY
  2. VITAMIN D [Concomitant]
  3. GLUCOVANCE [Suspect]
     Dosage: DOSE:5/500 MG,REDUCED:4 TABS-1 TAB PER DAY,3 GLUCOVANCE TABLETS EVERY DAY
     Dates: start: 19910101
  4. VITAMIN B-12 [Concomitant]

REACTIONS (11)
  - CALCULUS URINARY [None]
  - NAUSEA [None]
  - CYSTITIS NONINFECTIVE [None]
  - BLADDER DISORDER [None]
  - PRODUCT TASTE ABNORMAL [None]
  - BLOOD GLUCOSE INCREASED [None]
  - ULCER [None]
  - ABDOMINAL PAIN UPPER [None]
  - FLATULENCE [None]
  - EYE PRURITUS [None]
  - HEPATOMEGALY [None]
